FAERS Safety Report 4515273-4 (Version None)
Quarter: 2004Q4

REPORT INFORMATION
  Report Type: 
  Country: None (occurrence: None)
  Receive Date: 20041126
  Receipt Date: 20041123
  Transmission Date: 20050328
  Serious: No
  Sender: FDA-Public Use
  Company Number: 04H-122-0281218-00

PATIENT
  Age: 37 Year
  Sex: Female

DRUGS (2)
  1. PENTOTHAL [Suspect]
     Indication: ANAESTHESIA
     Dosage: 450 MG
     Dates: start: 20040212, end: 20040210
  2. SUCCINYLCHOLINE CHLORIDE [Suspect]
     Indication: ANAESTHESIA
     Dates: start: 20040210, end: 20040210

REACTIONS (2)
  - BRONCHOSPASM [None]
  - ERYTHEMA [None]
